FAERS Safety Report 16873345 (Version 1)
Quarter: 2019Q4

REPORT INFORMATION
  Report Type: Spontaneous
  Country: JP (occurrence: JP)
  Receive Date: 20191001
  Receipt Date: 20191001
  Transmission Date: 20200122
  Serious: Yes (Other)
  Sender: FDA-Public Use
  Company Number: JP-PFIZER INC-2019419475

PATIENT
  Age: 4 Decade
  Sex: Male

DRUGS (3)
  1. ONETRAM [Suspect]
     Active Substance: TRAMADOL HYDROCHLORIDE
     Dosage: 300 MG, UNK
  2. ONETRAM [Suspect]
     Active Substance: TRAMADOL HYDROCHLORIDE
     Indication: PAIN
     Dosage: 100 MG, UNK
  3. LYRICA [Suspect]
     Active Substance: PREGABALIN
     Indication: PAIN
     Dosage: 600 MG, DAILY
     Route: 048

REACTIONS (4)
  - Condition aggravated [Unknown]
  - Serotonin syndrome [Unknown]
  - Therapeutic product effect incomplete [Unknown]
  - Intervertebral disc protrusion [Unknown]
